FAERS Safety Report 9420873 (Version 1)
Quarter: 2013Q3

REPORT INFORMATION
  Report Type: Spontaneous
  Country: US (occurrence: US)
  Receive Date: 20130725
  Receipt Date: 20130725
  Transmission Date: 20140515
  Serious: No
  Sender: FDA-Public Use
  Company Number: US-ABBOTT-13P-163-1071616-00

PATIENT
  Age: 66 Year
  Sex: Female
  Weight: 60.84 kg

DRUGS (8)
  1. LEVOTHYROXINE [Suspect]
     Indication: HYPOTHYROIDISM
     Dates: start: 2000, end: 201204
  2. SYNTHROID [Suspect]
     Indication: HYPOTHYROIDISM
     Dates: start: 201204, end: 201212
  3. SYNTHROID [Suspect]
     Dosage: EVERY TUES, THURS, SAT + SUN
     Dates: start: 201212
  4. SYNTHROID [Suspect]
     Indication: HYPOTHYROIDISM
     Dosage: EVERY MON, WED + FRI
     Dates: start: 201212
  5. ATIVAN [Concomitant]
     Indication: PRODUCT USED FOR UNKNOWN INDICATION
  6. TRANXENE [Concomitant]
     Indication: PRODUCT USED FOR UNKNOWN INDICATION
  7. ACOLYT [Concomitant]
     Indication: PRODUCT USED FOR UNKNOWN INDICATION
  8. PULMICORT [Concomitant]
     Indication: PRODUCT USED FOR UNKNOWN INDICATION

REACTIONS (9)
  - Dyspepsia [Recovered/Resolved]
  - Oropharyngeal pain [Recovered/Resolved]
  - Sinusitis [Recovered/Resolved]
  - Upper-airway cough syndrome [Recovered/Resolved]
  - Productive cough [Recovered/Resolved]
  - Sputum discoloured [Recovered/Resolved]
  - Feeling jittery [Not Recovered/Not Resolved]
  - Nervousness [Not Recovered/Not Resolved]
  - Hypothyroidism [Recovered/Resolved]
